FAERS Safety Report 10519564 (Version 1)
Quarter: 2014Q4

REPORT INFORMATION
  Report Type: Spontaneous
  Country: US (occurrence: None)
  Receive Date: 20141014
  Receipt Date: 20141014
  Transmission Date: 20150528
  Serious: Yes (Life-Threatening, Hospitalization)
  Sender: FDA-Public Use
  Company Number: None

PATIENT
  Age: 61 Year
  Sex: Male
  Weight: 111.3 kg

DRUGS (1)
  1. SULFAMETHOXAZOLE/TRIMETHOPRIM [Suspect]
     Active Substance: SULFAMETHOXAZOLE\TRIMETHOPRIM
     Indication: SINUSITIS
     Dosage: MD BID PO
     Route: 048
     Dates: start: 20131017, end: 20131028

REACTIONS (5)
  - Angioedema [None]
  - Pruritus [None]
  - Rash [None]
  - Urticaria [None]
  - Joint swelling [None]

NARRATIVE: CASE EVENT DATE: 20131101
